FAERS Safety Report 11104802 (Version 1)
Quarter: 2015Q2

REPORT INFORMATION
  Report Type: Spontaneous
  Country: US (occurrence: US)
  Receive Date: 20150511
  Receipt Date: 20150511
  Transmission Date: 20150821
  Serious: Yes (Other)
  Sender: FDA-Public Use
  Company Number: US-PFIZER INC-2015152183

PATIENT
  Age: 28 Year
  Sex: Male
  Weight: 36.28 kg

DRUGS (1)
  1. LYRICA [Suspect]
     Active Substance: PREGABALIN
     Dosage: 75 MG, 2X/DAY
     Dates: start: 201502, end: 201503

REACTIONS (3)
  - Malaise [Unknown]
  - Condition aggravated [Unknown]
  - Psychotic disorder [Unknown]
